FAERS Safety Report 21033918 (Version 7)
Quarter: 2022Q4

REPORT INFORMATION
  Report Type: Report from Study
  Country: IE (occurrence: IE)
  Receive Date: 20220701
  Receipt Date: 20221021
  Transmission Date: 20230112
  Serious: Yes (Other)
  Sender: FDA-Public Use
  Company Number: IE-NOVARTISPH-NVSC2022IE059530

PATIENT
  Sex: Male

DRUGS (2)
  1. VOTRIENT [Suspect]
     Active Substance: PAZOPANIB HYDROCHLORIDE
     Indication: Product used for unknown indication
     Dosage: 10 MG
     Route: 048
  2. VOTRIENT [Suspect]
     Active Substance: PAZOPANIB HYDROCHLORIDE
     Dosage: 6 MG
     Route: 048

REACTIONS (8)
  - Deafness [Unknown]
  - Pallor [Unknown]
  - Viral infection [Unknown]
  - Back pain [Unknown]
  - Ear infection [Unknown]
  - Myalgia [Unknown]
  - Blood pressure increased [Unknown]
  - Headache [Unknown]
